FAERS Safety Report 14505573 (Version 1)
Quarter: 2018Q1

REPORT INFORMATION
  Report Type: Spontaneous
  Country: MA (occurrence: US)
  Receive Date: 20180208
  Receipt Date: 20180208
  Transmission Date: 20180509
  Serious: Yes (Hospitalization, Other)
  Sender: FDA-Public Use
  Company Number: MA-AMNEAL PHARMACEUTICALS COMPANY GMBH-2018AGH00001

PATIENT
  Age: 17 Year
  Sex: Male
  Weight: 54.88 kg

DRUGS (1)
  1. FUROSEMIDE. [Suspect]
     Active Substance: FUROSEMIDE
     Indication: PRODUCT USED FOR UNKNOWN INDICATION
     Dosage: 1 G, 1X/DAY
     Route: 048
     Dates: start: 201501

REACTIONS (10)
  - Swelling face [Recovered/Resolved]
  - Oedema peripheral [Recovered/Resolved]
  - Myalgia [Recovered/Resolved]
  - Vomiting [Recovered/Resolved]
  - Generalised oedema [Recovered/Resolved]
  - Pain [Recovered/Resolved]
  - Rhabdomyolysis [Recovered/Resolved]
  - Hypokalaemia [Recovered/Resolved]
  - Muscular weakness [Recovered/Resolved]
  - Diarrhoea [Recovered/Resolved]
